FAERS Safety Report 15590575 (Version 1)
Quarter: 2018Q4

REPORT INFORMATION
  Report Type: Spontaneous
  Country: US (occurrence: US)
  Receive Date: 20181106
  Receipt Date: 20181106
  Transmission Date: 20190205
  Serious: No
  Sender: FDA-Public Use
  Company Number: US-BAYER-2018-203274

PATIENT
  Sex: Male

DRUGS (2)
  1. ALEVE [Suspect]
     Active Substance: NAPROXEN SODIUM
     Indication: TENDONITIS
     Dosage: UNK
     Dates: start: 1991
  2. ADVIL [Concomitant]
     Active Substance: IBUPROFEN
     Indication: TENDONITIS
     Dosage: UNK

REACTIONS (1)
  - Product use in unapproved indication [Unknown]
